FAERS Safety Report 8181840-2 (Version None)
Quarter: 2012Q1

REPORT INFORMATION
  Report Type: 
  Country: None (occurrence: None)
  Receive Date: 20120302
  Receipt Date: 20120222
  Transmission Date: 20120608
  Serious: Yes (Other)
  Sender: FDA-Public Use
  Company Number: RU-ASTRAZENECA-2012SE13173

PATIENT
  Age: 44 Year
  Sex: Male

DRUGS (4)
  1. WARFARIN SODIUM [Suspect]
     Route: 048
  2. ATORVASTATIN CALCIUM [Concomitant]
  3. METOPROLOL SUCCINATE [Suspect]
     Route: 048
  4. LISINOPRIL AND HYDROCHLOROTHIAZIDE [Suspect]
     Route: 048

REACTIONS (3)
  - RASH [None]
  - HYPERAEMIA [None]
  - HYPERSENSITIVITY [None]
